FAERS Safety Report 14689071 (Version 1)
Quarter: 2018Q1

REPORT INFORMATION
  Report Type: Spontaneous
  Country: US (occurrence: US)
  Receive Date: 20180327
  Receipt Date: 20180327
  Transmission Date: 20180509
  Serious: Yes (Hospitalization, Disabling)
  Sender: FDA-Public Use
  Company Number: None

PATIENT
  Age: 68 Year
  Sex: Female
  Weight: 51.2 kg

DRUGS (1)
  1. PEMBROLIZUMAB. [Suspect]
     Active Substance: PEMBROLIZUMAB
     Indication: LUNG ADENOCARCINOMA
     Dosage: ?          OTHER FREQUENCY:MONTHLY;?
     Route: 040
     Dates: start: 20171212, end: 20180220

REACTIONS (1)
  - Tubulointerstitial nephritis [None]

NARRATIVE: CASE EVENT DATE: 20180220
